FAERS Safety Report 25933884 (Version 1)
Quarter: 2025Q4

REPORT INFORMATION
  Report Type: Spontaneous
  Country: US (occurrence: US)
  Receive Date: 20251017
  Receipt Date: 20251017
  Transmission Date: 20260117
  Serious: No
  Sender: GLAXOSMITHKLINE
  Company Number: US-GSK-US2025AMR125784

PATIENT
  Sex: Male

DRUGS (2)
  1. NUCALA [Suspect]
     Active Substance: MEPOLIZUMAB
     Indication: Asthma
     Dosage: 100 MG, Q4W
     Dates: start: 202204
  2. NUCALA [Suspect]
     Active Substance: MEPOLIZUMAB
     Indication: Anxiety disorder

REACTIONS (2)
  - Asthma [Unknown]
  - Product use in unapproved indication [Unknown]
